FAERS Safety Report 13481162 (Version 3)
Quarter: 2018Q1

REPORT INFORMATION
  Report Type: Report from Study
  Country: US (occurrence: US)
  Receive Date: 20170424
  Receipt Date: 20180116
  Transmission Date: 20180508
  Serious: No
  Sender: FDA-Public Use
  Company Number: US-AMGEN-USASL2017024158

PATIENT
  Age: 64 Year
  Sex: Female
  Weight: 75.28 kg

DRUGS (2)
  1. REPATHA [Suspect]
     Active Substance: EVOLOCUMAB
     Indication: PRODUCT USED FOR UNKNOWN INDICATION
     Dosage: 140 MG, Q2WK
     Route: 065
     Dates: start: 20160812
  2. LIVALO [Concomitant]
     Active Substance: PITAVASTATIN CALCIUM
     Indication: ARTERIOSCLEROSIS
     Dosage: 2 MG, QD
     Dates: start: 20160815

REACTIONS (2)
  - Back pain [Not Recovered/Not Resolved]
  - Oesophageal pain [Not Recovered/Not Resolved]
